FAERS Safety Report 6685086-6 (Version None)
Quarter: 2010Q2

REPORT INFORMATION
  Report Type: 
  Country: None (occurrence: None)
  Receive Date: 20100416
  Receipt Date: 20100407
  Transmission Date: 20101027
  Serious: Yes (Other)
  Sender: FDA-Public Use
  Company Number: B0646122A

PATIENT
  Age: 69 Year
  Sex: Male
  Weight: 75 kg

DRUGS (7)
  1. ARIXTRA [Suspect]
     Indication: THROMBOSIS PROPHYLAXIS
     Dosage: 2.5MG PER DAY
     Route: 058
     Dates: start: 20100119, end: 20100120
  2. HEPARIN [Suspect]
     Indication: THROMBOSIS PROPHYLAXIS
     Dosage: 11250IU TWICE PER DAY
     Route: 058
     Dates: start: 20100117, end: 20100118
  3. NEXIUM [Suspect]
     Indication: DRUG USE FOR UNKNOWN INDICATION
     Dosage: 20MG PER DAY
     Route: 048
     Dates: start: 20100118, end: 20100120
  4. KARDEGIC [Suspect]
     Indication: DRUG USE FOR UNKNOWN INDICATION
     Dosage: 300MG PER DAY
     Route: 048
     Dates: start: 20100118
  5. SUCRALFATE [Concomitant]
     Dosage: 1G PER DAY
     Route: 048
     Dates: start: 20100119, end: 20100120
  6. TAHOR [Concomitant]
     Dosage: 40MG PER DAY
     Route: 048
  7. LOXEN [Concomitant]
     Route: 042
     Dates: start: 20100116, end: 20100116

REACTIONS (1)
  - THROMBOCYTOPENIA [None]
